FAERS Safety Report 6434397-8 (Version None)
Quarter: 2009Q4

REPORT INFORMATION
  Report Type: 
  Country: None (occurrence: None)
  Receive Date: 20091110
  Receipt Date: 20081104
  Transmission Date: 20100525
  Serious: No
  Sender: FDA-Public Use
  Company Number: US-ASTRAZENECA-2009UW16243

PATIENT
  Age: 66 Year
  Sex: Female

DRUGS (6)
  1. PRILOSEC OTC [Suspect]
     Indication: GASTROOESOPHAGEAL REFLUX DISEASE
     Dosage: 1 TABLET, 2 /DAY FOR 60 DAYS
     Route: 048
     Dates: start: 20080904, end: 20081104
  2. VISEROL [Concomitant]
     Dosage: UNKNOWN
  3. ASPIRIN [Concomitant]
     Dosage: UNKNOWN
  4. VITAMIN B NOS [Concomitant]
     Dosage: UNKNOWN
  5. BONIVA [Concomitant]
     Dosage: UNKNOWN
  6. CALCIUM [Concomitant]
     Dosage: UNKNOWN

REACTIONS (5)
  - ABDOMINAL DISTENSION [None]
  - DIARRHOEA [None]
  - DISCOMFORT [None]
  - INAPPROPRIATE SCHEDULE OF DRUG ADMINISTRATION [None]
  - INCORRECT DRUG ADMINISTRATION DURATION [None]
